FAERS Safety Report 12968575 (Version 1)
Quarter: 2016Q4

REPORT INFORMATION
  Report Type: Spontaneous
  Country: AU (occurrence: AU)
  Receive Date: 20161123
  Receipt Date: 20161123
  Transmission Date: 20170207
  Serious: Yes (Other)
  Sender: FDA-Public Use
  Company Number: AU-CELGENEUS-AUS-2016113179

PATIENT

DRUGS (1)
  1. REVLIMID [Suspect]
     Active Substance: LENALIDOMIDE
     Indication: LYMPHOMA
     Dosage: 7.5-10 MG
     Route: 048

REACTIONS (3)
  - Neutropenia [Recovered/Resolved]
  - Fatigue [Recovered/Resolved]
  - Atrioventricular block complete [Unknown]
